FAERS Safety Report 12570267 (Version 1)
Quarter: 2016Q3

REPORT INFORMATION
  Report Type: Spontaneous
  Country: DK (occurrence: DK)
  Receive Date: 20160719
  Receipt Date: 20160719
  Transmission Date: 20161109
  Serious: Yes (Death, Other)
  Sender: FDA-Public Use
  Company Number: DK-PFIZER INC-2016327181

PATIENT
  Age: 54 Year
  Sex: Male

DRUGS (10)
  1. SERTRALINE HCL [Suspect]
     Active Substance: SERTRALINE HYDROCHLORIDE
     Indication: HYPERTENSION
     Dosage: 5000 MG, UNK
     Route: 048
  2. ATROPINE. [Concomitant]
     Active Substance: ATROPINE
     Indication: CARDIAC ARREST
  3. THIOPENTAL [Concomitant]
     Active Substance: THIOPENTAL
     Indication: SEDATION
     Dosage: 50 MG, UNK
  4. RAPIFEN /00109201/ [Concomitant]
     Dosage: 0.5 MG, UNK
  5. SUXAMETON SAD [Concomitant]
     Dosage: 100 MG, UNK
  6. VENLAFAXINE HCL [Suspect]
     Active Substance: VENLAFAXINE HYDROCHLORIDE
     Indication: DEPRESSION
     Dosage: 1500 MG, UNK
     Route: 048
  7. ISOPRENALINE [Concomitant]
     Active Substance: ISOPROTERENOL HYDROCHLORIDE
     Indication: CARDIAC ARREST
     Dosage: UNK
  8. VENLAFAXINE HCL [Suspect]
     Active Substance: VENLAFAXINE HYDROCHLORIDE
     Indication: HYPERTENSION
  9. STESOLID [Concomitant]
     Active Substance: DIAZEPAM
     Indication: SEIZURE
     Dosage: UNK
  10. SERTRALINE HCL [Suspect]
     Active Substance: SERTRALINE HYDROCHLORIDE
     Indication: DEPRESSION

REACTIONS (3)
  - Serotonin syndrome [Fatal]
  - Overdose [Fatal]
  - Completed suicide [Fatal]
